FAERS Safety Report 8007064-7 (Version None)
Quarter: 2011Q4

REPORT INFORMATION
  Report Type: 
  Country: None (occurrence: None)
  Receive Date: 20111222
  Receipt Date: 20111222
  Transmission Date: 20120403
  Serious: Yes (Death)
  Sender: FDA-Public Use
  Company Number: None

PATIENT
  Sex: Male
  Weight: 78.2 kg

DRUGS (2)
  1. CISPLATIN [Suspect]
     Dosage: 146 MG
     Dates: end: 20111110
  2. TAXOTERE [Suspect]
     Dosage: 146 MG
     Dates: end: 20111110

REACTIONS (6)
  - SOCIAL PROBLEM [None]
  - ALTERED STATE OF CONSCIOUSNESS [None]
  - HYPOTENSION [None]
  - FEBRILE NEUTROPENIA [None]
  - BLOOD PRESSURE DIASTOLIC INCREASED [None]
  - BLOOD PRESSURE DIASTOLIC DECREASED [None]
